FAERS Safety Report 5865184-7 (Version None)
Quarter: 2008Q3

REPORT INFORMATION
  Report Type: 
  Country: None (occurrence: None)
  Receive Date: 20080829
  Receipt Date: 20080822
  Transmission Date: 20090109
  Serious: Yes (Other)
  Sender: FDA-Public Use
  Company Number: A0745254A

PATIENT
  Sex: Male
  Weight: 93.2 kg

DRUGS (1)
  1. AVANDIA [Suspect]
     Dosage: 2MG TWICE PER DAY
     Route: 048
     Dates: start: 20070228, end: 20070503

REACTIONS (3)
  - ASTHENIA [None]
  - CARDIAC FAILURE CONGESTIVE [None]
  - FATIGUE [None]
